FAERS Safety Report 5487970-8 (Version None)
Quarter: 2007Q4

REPORT INFORMATION
  Report Type: 
  Country: None (occurrence: None)
  Receive Date: 20071012
  Receipt Date: 20071012
  Transmission Date: 20080405
  Serious: Yes (Other)
  Sender: FDA-Public Use
  Company Number: None

PATIENT
  Age: 65 Year
  Sex: Female
  Weight: 72.5755 kg

DRUGS (2)
  1. FORADIL [Suspect]
     Indication: CHRONIC OBSTRUCTIVE PULMONARY DISEASE
     Dosage: 12MCG 2 X DAILY INHAL
     Route: 055
     Dates: start: 20070301, end: 20071010
  2. FORADIL [Suspect]
     Indication: CHRONIC OBSTRUCTIVE PULMONARY DISEASE
     Dosage: 12MCG 2 X DAILY INHAL
     Route: 055
     Dates: start: 20070301, end: 20071010

REACTIONS (10)
  - BACK INJURY [None]
  - BACK PAIN [None]
  - CARTILAGE INJURY [None]
  - COUGH [None]
  - MOVEMENT DISORDER [None]
  - MUSCLE SPASMS [None]
  - MUSCLE STRAIN [None]
  - MUSCULOSKELETAL CHEST PAIN [None]
  - RIB FRACTURE [None]
  - VIRAL INFECTION [None]
